FAERS Safety Report 7036868-2 (Version None)
Quarter: 2010Q4

REPORT INFORMATION
  Report Type: 
  Country: None (occurrence: None)
  Receive Date: 20101011
  Receipt Date: 20100920
  Transmission Date: 20110411
  Serious: Yes (Other)
  Sender: FDA-Public Use
  Company Number: PHEH2010US03861

PATIENT
  Sex: Female

DRUGS (1)
  1. AREDIA [Suspect]
     Dosage: UNK
     Dates: start: 20020415, end: 20020701

REACTIONS (5)
  - ARTHRALGIA [None]
  - CHILLS [None]
  - DEEP VEIN THROMBOSIS [None]
  - HYPERHIDROSIS [None]
  - PYREXIA [None]
